FAERS Safety Report 15727662 (Version 1)
Quarter: 2018Q4

REPORT INFORMATION
  Report Type: Spontaneous
  Country: US (occurrence: US)
  Receive Date: 20181217
  Receipt Date: 20181217
  Transmission Date: 20190205
  Serious: Yes (Hospitalization, Other)
  Sender: FDA-Public Use
  Company Number: US-NOVEN PHARMACEUTICALS, INC.-US2018000103

PATIENT

DRUGS (10)
  1. ARMOUR THYROID [Concomitant]
     Active Substance: THYROID, PORCINE
     Indication: THYROID DISORDER
     Dosage: 1 G, MORNING
  2. SAVELLA [Concomitant]
     Active Substance: MILNACIPRAN HYDROCHLORIDE
  3. MINIVELLE [Suspect]
     Active Substance: ESTRADIOL
     Indication: PRODUCT USED FOR UNKNOWN INDICATION
     Dosage: 0.1 MG, 2/WK (EVERY TUESDAYS AND SATURDAYS)
     Route: 062
  4. BENFOTIAMINE [Concomitant]
     Active Substance: BENFOTIAMINE
     Indication: NEUROPATHY PERIPHERAL
     Route: 060
  5. MINIVELLE [Suspect]
     Active Substance: ESTRADIOL
     Dosage: 0.1 MG, 2/WEEK (EVERY TUESDAYS AND SATURDAYS)
     Route: 062
  6. MINIVELLE [Suspect]
     Active Substance: ESTRADIOL
     Dosage: 0.1 MG, 2/WEEK (EVERY TUESDAYS AND SATURDAYS)
     Route: 062
  7. VALIUM [Concomitant]
     Active Substance: DIAZEPAM
     Indication: SEIZURE
  8. MINIVELLE [Suspect]
     Active Substance: ESTRADIOL
     Dosage: 0.1MG, 2/WK, (EVERY TUESDAYS AND SATURDAYS)
     Route: 062
     Dates: start: 201803
  9. PROGESTERONE. [Concomitant]
     Active Substance: PROGESTERONE
     Dosage: 25 MG, UNK
  10. CORTIZONE 10 [Concomitant]
     Active Substance: HYDROCORTISONE
     Indication: MULTIPLE SCLEROSIS

REACTIONS (9)
  - Cerebrovascular accident [Recovered/Resolved]
  - Product adhesion issue [Unknown]
  - Hyperhidrosis [Unknown]
  - Product dose omission [Recovered/Resolved]
  - Therapy cessation [Recovered/Resolved]
  - Feeling abnormal [Unknown]
  - Blood pressure increased [Unknown]
  - Product quality issue [Unknown]
  - Product packaging issue [Recovered/Resolved]

NARRATIVE: CASE EVENT DATE: 2018
